FAERS Safety Report 24733655 (Version 1)
Quarter: 2024Q4

REPORT INFORMATION
  Report Type: Spontaneous
  Country: US (occurrence: US)
  Receive Date: 20241213
  Receipt Date: 20241213
  Transmission Date: 20250114
  Serious: Yes (Other)
  Sender: Norvium Bioscience
  Company Number: US-Norvium Bioscience LLC-079726

PATIENT
  Age: 18 Year
  Sex: Male

DRUGS (4)
  1. CLADRIBINE [Suspect]
     Active Substance: CLADRIBINE
     Indication: Acute myeloid leukaemia refractory
  2. IDARUBICIN [Concomitant]
     Active Substance: IDARUBICIN
     Indication: Acute myeloid leukaemia refractory
  3. CYTARABINE [Concomitant]
     Active Substance: CYTARABINE
     Indication: Acute myeloid leukaemia refractory
  4. VENETOCLAX [Concomitant]
     Active Substance: VENETOCLAX
     Indication: Acute myeloid leukaemia refractory

REACTIONS (2)
  - Febrile neutropenia [Unknown]
  - Hyperbilirubinaemia [Unknown]
